FAERS Safety Report 5145220-6 (Version None)
Quarter: 2006Q4

REPORT INFORMATION
  Report Type: 
  Country: None (occurrence: None)
  Receive Date: 20061107
  Receipt Date: 20061030
  Transmission Date: 20070319
  Serious: Yes (Hospitalization)
  Sender: FDA-Public Use
  Company Number: FR-BRISTOL-MYERS SQUIBB COMPANY-13566203

PATIENT
  Age: 78 Year
  Sex: Female

DRUGS (8)
  1. GLUCOPHAGE [Suspect]
     Indication: DIABETES MELLITUS
     Route: 048
  2. COUMADIN [Suspect]
     Route: 048
  3. LEVOTHYROXINE SODIUM [Suspect]
  4. HEMIGOXINE NATIVELLE [Suspect]
     Route: 048
  5. ZESTRIL [Suspect]
  6. LASIX [Suspect]
  7. AMLOR [Suspect]
  8. OMEPRAZOLE [Concomitant]

REACTIONS (8)
  - COGNITIVE DISORDER [None]
  - DEHYDRATION [None]
  - DRUG INTERACTION [None]
  - FALL [None]
  - GENERAL PHYSICAL HEALTH DETERIORATION [None]
  - PROTHROMBIN TIME SHORTENED [None]
  - RENAL FAILURE ACUTE [None]
  - VOMITING [None]
